FAERS Safety Report 8782685 (Version 1)
Quarter: 2012Q4

REPORT INFORMATION
  Report Type: 
  Country: GB (occurrence: GB)
  Receive Date: 20120913
  Receipt Date: 20120913
  Transmission Date: 20130627
  Serious: Yes (Life-Threatening)
  Sender: FDA-Public Use
  Company Number: GB-TEVA-357216ISR

PATIENT
  Age: 53 Year
  Sex: Female
  Weight: 65.77 kg

DRUGS (7)
  1. FENTANYL [Suspect]
     Indication: SEDATIVE THERAPY
     Dates: start: 20120728, end: 20120728
  2. BISOPROLOL [Concomitant]
  3. RAMIPRIL [Concomitant]
  4. SIMVASTATIN [Concomitant]
  5. ASPIRIN [Concomitant]
  6. GTN [Concomitant]
  7. MULTIBIONTA [Concomitant]

REACTIONS (6)
  - Cardiac arrest [Recovered/Resolved]
  - Hypotension [Recovered/Resolved]
  - Bradycardia [Recovered/Resolved]
  - Heart rate decreased [Recovered/Resolved]
  - Palpitations [Recovered/Resolved]
  - Arrhythmia [Recovered/Resolved]
